FAERS Safety Report 10490830 (Version 1)
Quarter: 2014Q4

REPORT INFORMATION
  Report Type: Spontaneous
  Country: US (occurrence: US)
  Receive Date: 20141002
  Receipt Date: 20141002
  Transmission Date: 20150528
  Serious: Yes (Hospitalization)
  Sender: FDA-Public Use
  Company Number: US-GLAXOSMITHKLINE-A1042471A

PATIENT
  Age: 83 Year
  Sex: Female

DRUGS (8)
  1. HCTZ [Concomitant]
     Active Substance: HYDROCHLOROTHIAZIDE
  2. ASPIRIN. [Concomitant]
     Active Substance: ASPIRIN
  3. METFORMIN [Concomitant]
     Active Substance: METFORMIN HYDROCHLORIDE
  4. WARFARIN [Concomitant]
     Active Substance: WARFARIN
  5. ADVAIR HFA [Suspect]
     Active Substance: FLUTICASONE PROPIONATE\SALMETEROL XINAFOATE
     Indication: CHRONIC OBSTRUCTIVE PULMONARY DISEASE
     Dosage: 1PUFF PER DAY
     Route: 055
  6. METOPROLOL [Concomitant]
     Active Substance: METOPROLOL
  7. TRAMADOL [Concomitant]
     Active Substance: TRAMADOL
  8. CAPTOPRIL. [Concomitant]
     Active Substance: CAPTOPRIL

REACTIONS (1)
  - Dyspnoea [Recovered/Resolved]

NARRATIVE: CASE EVENT DATE: 20130821
